FAERS Safety Report 8338996-8 (Version None)
Quarter: 2012Q2

REPORT INFORMATION
  Report Type: 
  Country: None (occurrence: None)
  Receive Date: 20120507
  Receipt Date: 20120426
  Transmission Date: 20120825
  Serious: Yes (Other)
  Sender: FDA-Public Use
  Company Number: US-BAYER-2012-041612

PATIENT

DRUGS (1)
  1. NAPROXEN SODIUM [Suspect]

REACTIONS (2)
  - MYOCARDIAL INFARCTION [None]
  - DYSPEPSIA [None]
